FAERS Safety Report 8303065-X (Version None)
Quarter: 2012Q2

REPORT INFORMATION
  Report Type: 
  Country: None (occurrence: None)
  Receive Date: 20120422
  Receipt Date: 20120412
  Transmission Date: 20120825
  Serious: Yes (Death, Hospitalization, Other)
  Sender: FDA-Public Use
  Company Number: CH-AMGEN-CHECT2012023362

PATIENT
  Age: 76 Year
  Sex: Male
  Weight: 77.5 kg

DRUGS (19)
  1. ASPIRIN [Concomitant]
     Dosage: 100 MG, QD
     Route: 048
  2. ACETAMINOPHEN [Concomitant]
     Dosage: 500 MG, UNK
  3. LANTUS [Concomitant]
     Dosage: UNK UNK, QD
  4. LISINOPRIL [Concomitant]
     Dosage: 5 MG, QD
  5. CALCIUM ACETATE [Concomitant]
     Dosage: 400 MG, QID
  6. ELOCON [Concomitant]
  7. MOTILIUM [Concomitant]
     Dosage: UNK UNK, TID
  8. CINACALCET HYDROCHLORIDE [Suspect]
     Indication: HYPERPARATHYROIDISM SECONDARY
     Dosage: 30 MG, 3 TIMES/WK
     Route: 048
     Dates: start: 20081209, end: 20100909
  9. TORSEMIDE [Concomitant]
     Dosage: UNK
     Route: 048
  10. ZOLPIDEM [Concomitant]
     Dosage: 10 MG, QD
     Route: 048
  11. SORBISTERIT [Concomitant]
     Dosage: 10 G, TID
  12. CARVEDILOL [Concomitant]
     Dosage: 3.125 MG, BID
  13. PRAVALOTIN [Concomitant]
     Dosage: 40 MG, QD
     Route: 048
  14. ATARAX [Concomitant]
     Dosage: 25 MG, QD
  15. NITROGLYCERIN [Concomitant]
  16. PLAVIX [Concomitant]
     Dosage: 75 MG, QD
     Route: 048
  17. PANTOPRAZOLE [Concomitant]
     Dosage: 20 MG, QD
  18. RENAGEL [Concomitant]
     Dosage: UNK UNK, BID
  19. EXCIPIAL [Concomitant]

REACTIONS (4)
  - DYSPEPSIA [None]
  - METABOLIC ACIDOSIS [None]
  - DIARRHOEA [None]
  - VOMITING [None]
